FAERS Safety Report 16677709 (Version 1)
Quarter: 2019Q3

REPORT INFORMATION
  Report Type: Report from Study
  Country: US (occurrence: US)
  Receive Date: 20190807
  Receipt Date: 20190807
  Transmission Date: 20191004
  Serious: Yes (Other)
  Sender: FDA-Public Use
  Company Number: US-TAIHO ONCOLOGY  INC-EU-2019-02069

PATIENT
  Age: 78 Year
  Sex: Female
  Weight: 79.45 kg

DRUGS (12)
  1. CEFTIN [Concomitant]
     Active Substance: CEFUROXIME AXETIL
     Dosage: NI
  2. VITAMIN B12 [Concomitant]
     Active Substance: CYANOCOBALAMIN
     Dosage: NI
  3. ALBUTEROL. [Concomitant]
     Active Substance: ALBUTEROL
     Dosage: INHALER
  4. LEVOTHYROXINE. [Concomitant]
     Active Substance: LEVOTHYROXINE
     Dosage: NI
  5. ONDANSETRON [Concomitant]
     Active Substance: ONDANSETRON
     Dosage: NI
  6. LONSURF [Suspect]
     Active Substance: TIPIRACIL HYDROCHLORIDE\TRIFLURIDINE
     Indication: RECTAL CANCER
     Dosage: ON DAYS 1-5 AND 8-12?CURRENT CYCLE UNKNOWN
     Route: 048
     Dates: start: 20170715
  7. PLAVIX [Concomitant]
     Active Substance: CLOPIDOGREL BISULFATE
     Dosage: NI
  8. SYMBICORT [Concomitant]
     Active Substance: BUDESONIDE\FORMOTEROL FUMARATE DIHYDRATE
     Dosage: NI
  9. GABAPENTIN. [Concomitant]
     Active Substance: GABAPENTIN
     Dosage: NI
  10. NEURONTIN [Concomitant]
     Active Substance: GABAPENTIN
     Dosage: NI
  11. CALCIUM WITH VITAMIN D [Concomitant]
     Active Substance: CALCIUM\VITAMIN D
     Dosage: NI
  12. CLOPIDOGREL [Concomitant]
     Active Substance: CLOPIDOGREL BISULFATE
     Dosage: NI

REACTIONS (4)
  - Diarrhoea [Recovered/Resolved]
  - Hypotension [Recovered/Resolved]
  - White blood cell count decreased [Recovered/Resolved]
  - Abdominal pain [Not Recovered/Not Resolved]

NARRATIVE: CASE EVENT DATE: 20190515
